FAERS Safety Report 7671809-6 (Version None)
Quarter: 2011Q3

REPORT INFORMATION
  Report Type: 
  Country: None (occurrence: None)
  Receive Date: 20110809
  Receipt Date: 20110801
  Transmission Date: 20111222
  Serious: Yes (Hospitalization, Other)
  Sender: FDA-Public Use
  Company Number: DE-ROCHE-790799

PATIENT
  Age: 73 Year
  Sex: Male
  Weight: 83 kg

DRUGS (6)
  1. ALLOPURINOL [Concomitant]
     Indication: HYPERURICAEMIA
     Dosage: FOR YEARS
     Route: 048
  2. ROCEPHIN [Suspect]
     Indication: BORRELIA INFECTION
     Route: 042
     Dates: start: 20110408, end: 20110428
  3. PANTOPRAZOLE [Concomitant]
     Indication: ILL-DEFINED DISORDER
     Route: 048
     Dates: start: 20110414
  4. METOPROLOL SUCCINATE [Concomitant]
     Indication: HYPERTENSION
     Dosage: FOR YEARS
     Route: 048
  5. TRAMADOL HCL [Concomitant]
     Indication: PAIN
     Dosage: IF REQUIRED
     Route: 048
     Dates: start: 20110406
  6. RAMIPRIL [Concomitant]
     Indication: HYPERTENSION
     Dosage: FOR YEARS
     Route: 048

REACTIONS (7)
  - GENERAL PHYSICAL HEALTH DETERIORATION [None]
  - BLOOD CREATININE INCREASED [None]
  - TRANSAMINASES INCREASED [None]
  - WEIGHT DECREASED [None]
  - PRURITUS [None]
  - HYPERCALCAEMIA [None]
  - DECREASED APPETITE [None]
